FAERS Safety Report 8425902-0 (Version None)
Quarter: 2012Q2

REPORT INFORMATION
  Report Type: 
  Country: None (occurrence: None)
  Receive Date: 20120611
  Receipt Date: 20120601
  Transmission Date: 20120825
  Serious: Yes (Other)
  Sender: FDA-Public Use
  Company Number: AU-JNJFOC-20110904842

PATIENT
  Sex: Female

DRUGS (7)
  1. STELARA [Suspect]
     Route: 058
     Dates: start: 20110602, end: 20110602
  2. CONTRACEPTIVE [Concomitant]
  3. STELARA [Suspect]
     Indication: PSORIASIS
     Route: 058
     Dates: start: 20100601, end: 20100601
  4. STELARA [Suspect]
     Route: 058
     Dates: start: 20101216, end: 20101216
  5. STELARA [Suspect]
     Route: 058
     Dates: start: 20100701, end: 20100701
  6. STELARA [Suspect]
     Route: 058
     Dates: start: 20100923, end: 20100923
  7. STELARA [Suspect]
     Route: 058
     Dates: start: 20110410, end: 20110410

REACTIONS (3)
  - PERICARDIAL EFFUSION [None]
  - MATERNAL EXPOSURE DURING PREGNANCY [None]
  - PREMATURE DELIVERY [None]
